FAERS Safety Report 14777180 (Version 1)
Quarter: 2018Q2

REPORT INFORMATION
  Report Type: Spontaneous
  Country: NL (occurrence: NL)
  Receive Date: 20180419
  Receipt Date: 20180419
  Transmission Date: 20180711
  Serious: Yes (Other)
  Sender: FDA-Public Use
  Company Number: NL-TEVA-2018-NL-883863

PATIENT
  Age: 71 Year
  Sex: Male
  Weight: 110 kg

DRUGS (5)
  1. SIMVASTATIN. [Suspect]
     Active Substance: SIMVASTATIN
     Indication: HYPERCHOLESTEROLAEMIA
     Dates: start: 20170406
  2. BARNIDIPINE 20MG [Concomitant]
     Route: 065
     Dates: start: 20141231
  3. PRADAXA [Concomitant]
     Active Substance: DABIGATRAN ETEXILATE MESYLATE
     Route: 065
     Dates: start: 20141231
  4. FUROSEMIDE 40MG [Concomitant]
     Active Substance: FUROSEMIDE
     Route: 065
     Dates: start: 20141231
  5. ENALAPRILMALEAAT 20 MG [Concomitant]
     Route: 065
     Dates: start: 20141231

REACTIONS (4)
  - Muscle spasms [Recovered/Resolved]
  - Muscle rupture [Recovered/Resolved]
  - Swelling face [Recovered/Resolved]
  - Fluid retention [Recovered/Resolved]

NARRATIVE: CASE EVENT DATE: 20180126
